FAERS Safety Report 16768120 (Version 1)
Quarter: 2019Q4

REPORT INFORMATION
  Report Type: Spontaneous
  Country: US (occurrence: US)
  Receive Date: 20190903
  Receipt Date: 20190903
  Transmission Date: 20200122
  Serious: Yes (Hospitalization)
  Sender: FDA-Public Use
  Company Number: None

PATIENT
  Sex: Female

DRUGS (19)
  1. METHOTREXATE. [Concomitant]
     Active Substance: METHOTREXATE
  2. PROTONIX [Concomitant]
     Active Substance: PANTOPRAZOLE SODIUM
  3. SPIRIVA [Concomitant]
     Active Substance: TIOTROPIUM BROMIDE MONOHYDRATE
  4. VITAMIN D [Concomitant]
     Active Substance: VITAMIN D NOS
  5. XOLAIR [Suspect]
     Active Substance: OMALIZUMAB
     Indication: ASTHMA
     Dosage: ?          OTHER FREQUENCY:MONTHLY;?
     Route: 058
     Dates: start: 20140120
  6. RANITIDINE. [Concomitant]
     Active Substance: RANITIDINE
  7. ALBUTEROL. [Concomitant]
     Active Substance: ALBUTEROL
  8. BUPROPION. [Concomitant]
     Active Substance: BUPROPION
  9. DIOVAN [Concomitant]
     Active Substance: VALSARTAN
  10. SINGULAIR [Concomitant]
     Active Substance: MONTELUKAST SODIUM
  11. ASMANEX [Concomitant]
     Active Substance: MOMETASONE FUROATE
  12. PREDNISONE. [Concomitant]
     Active Substance: PREDNISONE
  13. SYMBICORT [Concomitant]
     Active Substance: BUDESONIDE\FORMOTEROL FUMARATE DIHYDRATE
  14. ENBREL [Suspect]
     Active Substance: ETANERCEPT
     Indication: RHEUMATOID ARTHRITIS
     Dosage: ?          OTHER FREQUENCY:EVERY WEEK;?
     Route: 058
     Dates: start: 20190125
  15. FLUTICASONE. [Concomitant]
     Active Substance: FLUTICASONE
  16. FOLIC ACID. [Concomitant]
     Active Substance: FOLIC ACID
  17. PAXIL [Concomitant]
     Active Substance: PAROXETINE HYDROCHLORIDE
  18. OSELTAMIVIR [Concomitant]
     Active Substance: OSELTAMIVIR
  19. TRAZODONE [Concomitant]
     Active Substance: TRAZODONE HYDROCHLORIDE

REACTIONS (1)
  - Cellulitis [None]
